FAERS Safety Report 6520369-1 (Version None)
Quarter: 2009Q4

REPORT INFORMATION
  Report Type: 
  Country: None (occurrence: None)
  Receive Date: 20091229
  Receipt Date: 20080703
  Transmission Date: 20100525
  Serious: Yes (Hospitalization)
  Sender: FDA-Public Use
  Company Number: JP-JNJFOC-20071107090

PATIENT
  Sex: Female
  Weight: 37 kg

DRUGS (4)
  1. REMICADE [Suspect]
     Indication: RHEUMATOID ARTHRITIS
     Dosage: INFUSIONS FOR 2 YEARS
     Route: 042
  2. PREDONINE [Suspect]
     Indication: RHEUMATOID ARTHRITIS
     Route: 048
  3. LOXONIN [Suspect]
     Indication: RHEUMATOID ARTHRITIS
     Route: 048
  4. METOLATE [Suspect]
     Indication: RHEUMATOID ARTHRITIS
     Route: 048

REACTIONS (3)
  - ILEAL ULCER [None]
  - ILEUS [None]
  - INTESTINAL OBSTRUCTION [None]
